FAERS Safety Report 5570579-5 (Version None)
Quarter: 2007Q4

REPORT INFORMATION
  Report Type: 
  Country: None (occurrence: None)
  Receive Date: 20071221
  Receipt Date: 20071210
  Transmission Date: 20080405
  Serious: Yes (Other)
  Sender: FDA-Public Use
  Company Number: TR-BAYER-200718142GPV

PATIENT
  Age: 53 Year
  Sex: Male

DRUGS (1)
  1. GRANULOCYTE-MACROPHAGE COLONY STIMULATING FACTOR [Suspect]
     Indication: HAEMATOPOIETIC STEM CELL MOBILISATION
     Dosage: TOTAL DAILY DOSE: 5 ?G/KG
     Route: 065

REACTIONS (3)
  - ARTHRALGIA [None]
  - ARTHRITIS [None]
  - JOINT SWELLING [None]
